FAERS Safety Report 23832281 (Version 1)
Quarter: 2024Q2

REPORT INFORMATION
  Report Type: Spontaneous
  Country: US (occurrence: None)
  Receive Date: 20240507
  Receipt Date: 20240507
  Transmission Date: 20240716
  Serious: No
  Sender: FDA-Public Use
  Company Number: None

PATIENT
  Age: 71 Year
  Sex: Male

DRUGS (1)
  1. PIRFENIDONE [Suspect]
     Active Substance: PIRFENIDONE
     Indication: Idiopathic pulmonary fibrosis
     Dosage: 267 MG TID ORAL
     Route: 048
     Dates: start: 20240301, end: 20240315

REACTIONS (2)
  - Chest pain [None]
  - Therapy cessation [None]

NARRATIVE: CASE EVENT DATE: 20240315
